FAERS Safety Report 15786471 (Version 2)
Quarter: 2019Q1

REPORT INFORMATION
  Report Type: Report from Study
  Country: US (occurrence: US)
  Receive Date: 20190103
  Receipt Date: 20190227
  Transmission Date: 20190417
  Serious: Yes (Hospitalization, Other)
  Sender: FDA-Public Use
  Company Number: US-BAYER-2018-244954

PATIENT
  Age: 79 Year
  Sex: Male

DRUGS (17)
  1. DIGOXIN. [Concomitant]
     Active Substance: DIGOXIN
  2. BREO ELLIPTA [Concomitant]
     Active Substance: FLUTICASONE FUROATE\VILANTEROL TRIFENATATE
     Dosage: UNK
     Route: 048
     Dates: start: 20181002
  3. NEXAVAR [Suspect]
     Active Substance: SORAFENIB
     Indication: HEPATOCELLULAR CARCINOMA
     Dosage: 200 MG, BID
     Route: 048
     Dates: start: 20181221
  4. LISINOPRIL. [Concomitant]
     Active Substance: LISINOPRIL
     Dosage: UNK
     Route: 048
     Dates: start: 20181002
  5. METFORMIN HCL [Concomitant]
     Active Substance: METFORMIN HYDROCHLORIDE
  6. NEXAVAR [Suspect]
     Active Substance: SORAFENIB
     Indication: HEPATOCELLULAR CARCINOMA
     Dosage: DAILY DOSE 200 MG
     Dates: start: 20181220
  7. LASIX [Concomitant]
     Active Substance: FUROSEMIDE
  8. LISINOPRIL. [Concomitant]
     Active Substance: LISINOPRIL
  9. CARVEDILOL. [Concomitant]
     Active Substance: CARVEDILOL
     Dosage: UNK
     Route: 048
     Dates: start: 20181002
  10. MEXILETINE [Concomitant]
     Active Substance: MEXILETINE
     Dosage: 1 DF, BID
     Dates: start: 20190117
  11. DIGOXIN. [Concomitant]
     Active Substance: DIGOXIN
     Dosage: UNK
     Dates: start: 20181002
  12. NEXAVAR [Suspect]
     Active Substance: SORAFENIB
     Indication: HEPATOCELLULAR CARCINOMA
     Dosage: DAILY DOSE 200 MG
     Route: 048
     Dates: start: 20181121
  13. COREG [Concomitant]
     Active Substance: CARVEDILOL
  14. FUROSEMIDE. [Concomitant]
     Active Substance: FUROSEMIDE
     Dosage: UNK
     Route: 048
     Dates: start: 20181002
  15. XARELTO [Concomitant]
     Active Substance: RIVAROXABAN
     Dosage: UNK
  16. METFORMIN [Concomitant]
     Active Substance: METFORMIN HYDROCHLORIDE
     Dosage: UNK
     Route: 048
     Dates: start: 20181002
  17. NEXAVAR [Suspect]
     Active Substance: SORAFENIB
     Indication: HEPATOCELLULAR CARCINOMA
     Dosage: DAILY DOSE 200 MG
     Route: 048
     Dates: start: 201810

REACTIONS (17)
  - Metastases to bone [None]
  - Compression fracture [None]
  - Asthenia [None]
  - Dry skin [None]
  - Bone lesion [None]
  - Decreased appetite [None]
  - Hepatocellular carcinoma [None]
  - Abdominal lymphadenopathy [None]
  - Hypoglycaemia [Not Recovered/Not Resolved]
  - Decreased appetite [Not Recovered/Not Resolved]
  - Oedema peripheral [None]
  - Vascular compression [None]
  - Hepatic mass [None]
  - Dyspnoea exertional [None]
  - Back pain [None]
  - Abdominal pain [None]
  - Off label use [None]

NARRATIVE: CASE EVENT DATE: 20181225
